FAERS Safety Report 20998599 (Version 3)
Quarter: 2022Q3

REPORT INFORMATION
  Report Type: Spontaneous
  Country: US (occurrence: US)
  Receive Date: 20220623
  Receipt Date: 20220712
  Transmission Date: 20221027
  Serious: No
  Sender: FDA-Public Use
  Company Number: US-NOVARTISTESTPH-NVSC2022US143716

PATIENT
  Sex: Female

DRUGS (2)
  1. PROMACTA [Suspect]
     Active Substance: ELTROMBOPAG OLAMINE
     Indication: Myelodysplastic syndrome
     Dosage: 150 MG, QD
     Route: 048
     Dates: start: 20220606
  2. PROMACTA [Suspect]
     Active Substance: ELTROMBOPAG OLAMINE
     Dosage: 75 MG, QD
     Route: 048
     Dates: start: 202206

REACTIONS (5)
  - Diarrhoea [Recovered/Resolved]
  - Nausea [Unknown]
  - Abdominal pain upper [Unknown]
  - Fatigue [Unknown]
  - Product use in unapproved indication [Unknown]
